FAERS Safety Report 18763253 (Version 1)
Quarter: 2021Q1

REPORT INFORMATION
  Report Type: Spontaneous
  Country: DE (occurrence: DE)
  Receive Date: 20210120
  Receipt Date: 20210120
  Transmission Date: 20210419
  Serious: Yes (Life-Threatening, Hospitalization, Other)
  Sender: FDA-Public Use
  Company Number: DE-MYLANLABS-M-EU-2013040257

PATIENT
  Sex: Female
  Weight: 44 kg

DRUGS (3)
  1. SALBUTAMOL [Concomitant]
     Active Substance: ALBUTEROL
     Indication: FOOD ALLERGY
     Dosage: 2 DOSAGE FORMS DAILY IN CASE OR EMERGENCY
  2. CETIRIZINE [Concomitant]
     Active Substance: CETIRIZINE HYDROCHLORIDE
     Indication: FOOD ALLERGY
     Dosage: 1 TABLET DAILY IN CASE OR EMERGENCY
  3. FASTJEKT [Suspect]
     Active Substance: EPINEPHRINE
     Indication: FOOD ALLERGY
     Dosage: UNK
     Route: 065

REACTIONS (8)
  - Dyspnoea [Unknown]
  - Lip blister [Unknown]
  - Nasal oedema [Unknown]
  - Swelling [Unknown]
  - Pharyngeal swelling [Unknown]
  - Vomiting [Unknown]
  - Asthenia [Unknown]
  - Device failure [Unknown]

NARRATIVE: CASE EVENT DATE: 2003
